FAERS Safety Report 6160706-3 (Version None)
Quarter: 2009Q2

REPORT INFORMATION
  Report Type: 
  Country: None (occurrence: None)
  Receive Date: 20090420
  Receipt Date: 20090408
  Transmission Date: 20091009
  Serious: Yes (Hospitalization)
  Sender: FDA-Public Use
  Company Number: IN-TEVA-191201ISR

PATIENT
  Sex: Female
  Weight: 47 kg

DRUGS (4)
  1. FOLINIC ACID [Suspect]
     Indication: RECTAL CANCER
     Route: 042
     Dates: start: 20080811
  2. FLUOROURACIL [Suspect]
     Indication: RECTAL CANCER
     Route: 042
     Dates: start: 20080811
  3. IRINOTECAN HCL [Suspect]
     Indication: RECTAL CANCER
     Route: 042
     Dates: start: 20080811
  4. SUNITINIB MALATE;PLACEBO (CODE NOT BROKEN) [Suspect]
     Indication: RECTAL CANCER
     Route: 048
     Dates: start: 20080811

REACTIONS (2)
  - DEEP VEIN THROMBOSIS [None]
  - FEBRILE NEUTROPENIA [None]
